FAERS Safety Report 6437231-5 (Version None)
Quarter: 2009Q4

REPORT INFORMATION
  Report Type: 
  Country: None (occurrence: None)
  Receive Date: 20091112
  Receipt Date: 20091103
  Transmission Date: 20100525
  Serious: Yes (Hospitalization)
  Sender: FDA-Public Use
  Company Number: US-BAYER-200938308NA

PATIENT
  Age: 25 Year
  Sex: Female
  Weight: 100 kg

DRUGS (2)
  1. YAZ [Suspect]
     Indication: CONTRACEPTION
     Route: 048
     Dates: start: 20080901, end: 20081101
  2. YAZ [Suspect]
     Route: 048
     Dates: end: 20080801

REACTIONS (6)
  - CHOLECYSTECTOMY [None]
  - DIARRHOEA [None]
  - INFLUENZA LIKE ILLNESS [None]
  - MALAISE [None]
  - PAIN [None]
  - VOMITING [None]
